FAERS Safety Report 6135126 (Version 3)
Quarter: 2020Q3

REPORT INFORMATION
  Report Type: Report from Study
  Country: UA (occurrence: UA)
  Receive Date: 20060911
  Receipt Date: 20070209
  Transmission Date: 20201105
  Serious: Yes (Death)
  Sender: FDA-Public Use
  Company Number: HQWYE346106SEP06

PATIENT
  Age: 66 Year
  Sex: Male
  Weight: 78 kg

DRUGS (6)
  1. FAMOTIDINE. [Concomitant]
     Active Substance: FAMOTIDINE
     Indication: GASTRITIS
     Dosage: 40 MG DAILY
     Route: 048
     Dates: start: 20060828, end: 20060903
  2. ASCORBIC ACID. [Concomitant]
     Active Substance: ASCORBIC ACID
     Dosage: UNKNOWN
     Route: 048
     Dates: start: 20060813, end: 20060903
  3. NIMESULIDE [Concomitant]
     Active Substance: NIMESULIDE
     Dosage: 500 MG DAILY
     Route: 048
     Dates: start: 20060830, end: 20060831
  4. CILASTATIN SODIUM\IMIPENEM [Suspect]
     Active Substance: CILASTATIN SODIUM\IMIPENEM
     Indication: PNEUMONIA
     Route: 042
     Dates: start: 20060830, end: 20060901
  5. VANCOMYCIN HYDROCHLORIDE. [Suspect]
     Active Substance: VANCOMYCIN HYDROCHLORIDE
     Indication: PNEUMONIA
     Dosage: UNKNOWN
     Route: 042
     Dates: start: 20060830, end: 20060901
  6. AMBROXOL [Concomitant]
     Indication: PRODUCTIVE COUGH
     Dosage: 0.09 GRAMS DAILY
     Route: 048
     Dates: start: 20060830, end: 20060903

REACTIONS (1)
  - Cardiopulmonary failure [Fatal]

NARRATIVE: CASE EVENT DATE: 20060901
